FAERS Safety Report 9823376 (Version 2)
Quarter: 2014Q1

REPORT INFORMATION
  Report Type: Spontaneous
  Country: US (occurrence: US)
  Receive Date: 20140116
  Receipt Date: 20140116
  Transmission Date: 20141002
  Serious: No
  Sender: FDA-Public Use
  Company Number: US-GILEAD-2011-0035074

PATIENT
  Age: 66 Year
  Sex: Female

DRUGS (15)
  1. LETAIRIS [Suspect]
     Indication: PULMONARY HYPERTENSION
     Route: 048
     Dates: start: 20101028
  2. LETAIRIS [Suspect]
     Indication: ATRIAL SEPTAL DEFECT
  3. LETAIRIS [Suspect]
     Indication: SLEEP APNOEA SYNDROME
  4. BABY ASA [Concomitant]
  5. LASIX [Concomitant]
  6. ALDACTONE [Concomitant]
  7. DIGOXIN [Concomitant]
  8. EFFEXOR [Concomitant]
  9. ZOCOR [Concomitant]
  10. METOPROLOL [Concomitant]
  11. HUMALOG [Concomitant]
  12. LANTUS [Concomitant]
  13. KLONOPIN [Concomitant]
  14. MECLIZINE [Concomitant]
  15. MORPHINE [Concomitant]

REACTIONS (2)
  - Fatigue [Recovered/Resolved]
  - Abdominal pain upper [Unknown]
